FAERS Safety Report 8405763-6 (Version None)
Quarter: 2012Q2

REPORT INFORMATION
  Report Type: 
  Country: None (occurrence: None)
  Receive Date: 20120323
  Receipt Date: 20110418
  Transmission Date: 20120825
  Serious: Yes (Other)
  Sender: FDA-Public Use
  Company Number: 163-21880-10081763

PATIENT
  Age: 52 Year
  Sex: Female
  Weight: 88.4514 kg

DRUGS (12)
  1. XANAX [Concomitant]
  2. ASPIRIN [Concomitant]
  3. ATENOLOL [Concomitant]
  4. VITAMIN B6 [Concomitant]
  5. CALCIUM +D (0S-CAL) [Concomitant]
  6. REVLIMID [Suspect]
     Indication: MULTIPLE MYELOMA
     Dosage: 25 MG, DAILY X 21 DAYS, PO20 MG, 2 IN 1 D, PO, 5 MG, DAILY X 21 DAYS, PO
     Route: 048
     Dates: start: 20091101
  7. REVLIMID [Suspect]
     Indication: MULTIPLE MYELOMA
     Dosage: 25 MG, DAILY X 21 DAYS, PO20 MG, 2 IN 1 D, PO, 5 MG, DAILY X 21 DAYS, PO
     Route: 048
     Dates: start: 20100801
  8. REVLIMID [Suspect]
     Indication: MULTIPLE MYELOMA
     Dosage: 25 MG, DAILY X 21 DAYS, PO20 MG, 2 IN 1 D, PO, 5 MG, DAILY X 21 DAYS, PO
     Route: 048
     Dates: start: 20100401
  9. GABAPENTIN [Concomitant]
  10. FISH OIL (FISH OIL) [Concomitant]
  11. IMIPRAMINE [Concomitant]
  12. DEXAMETHASONE [Concomitant]

REACTIONS (2)
  - NEUTROPENIA [None]
  - NEUROPATHY PERIPHERAL [None]
